FAERS Safety Report 25784819 (Version 2)
Quarter: 2025Q4

REPORT INFORMATION
  Report Type: Spontaneous
  Country: CA (occurrence: CA)
  Receive Date: 20250910
  Receipt Date: 20251210
  Transmission Date: 20260118
  Serious: Yes (Other)
  Sender: AUROBINDO
  Company Number: CA-AUROBINDO-AUR-APL-2024-042326

PATIENT
  Age: 50 Year
  Sex: Male

DRUGS (10)
  1. DULOXETINE [Suspect]
     Active Substance: DULOXETINE
     Indication: Depression
     Dosage: 60 MILLIGRAM, DAILY
     Route: 065
  2. DULOXETINE [Suspect]
     Active Substance: DULOXETINE
     Indication: Psychotherapy
  3. QUETIAPINE [Suspect]
     Active Substance: QUETIAPINE
     Indication: Depression
     Dosage: 25-50 MG ONCE A DAY
     Route: 065
  4. QUETIAPINE [Suspect]
     Active Substance: QUETIAPINE
     Indication: Psychotherapy
  5. KETAMINE [Suspect]
     Active Substance: KETAMINE
     Indication: Depression
     Dosage: 6 INFUSIONS
  6. VORTIOXETINE [Suspect]
     Active Substance: VORTIOXETINE
     Indication: Depression
     Dosage: 20 MILLIGRAM, DAILY
     Route: 065
  7. ZOLPIDEM TARTRATE [Suspect]
     Active Substance: ZOLPIDEM TARTRATE
     Indication: Depression
     Dosage: 10-15MG
     Route: 065
  8. ZOLPIDEM TARTRATE [Suspect]
     Active Substance: ZOLPIDEM TARTRATE
     Indication: Psychotherapy
  9. PSILOCYBIN [Concomitant]
     Active Substance: PSILOCYBIN
     Indication: Depression
     Dosage: 25 MILLIGRAM
  10. DULOXETINE [Concomitant]
     Active Substance: DULOXETINE
     Indication: Psychotherapy
     Dosage: 60 MILLIGRAM, ONCE A DAY
     Route: 065

REACTIONS (8)
  - Therapeutic response decreased [Unknown]
  - Off label use [Unknown]
  - Drug ineffective for unapproved indication [Unknown]
  - Dizziness [Unknown]
  - Fatigue [Unknown]
  - Myalgia [Unknown]
  - Drug withdrawal syndrome [Unknown]
  - Drug ineffective [Unknown]
